FAERS Safety Report 10274568 (Version 1)
Quarter: 2014Q3

REPORT INFORMATION
  Report Type: Spontaneous
  Country: GB (occurrence: GB)
  Receive Date: 20140702
  Receipt Date: 20140702
  Transmission Date: 20150326
  Serious: Yes (Life-Threatening, Hospitalization, Other)
  Sender: FDA-Public Use
  Company Number: GB-PFIZER INC-2014179013

PATIENT
  Age: 66 Year
  Sex: Male
  Weight: 61 kg

DRUGS (3)
  1. ASPIRIN. [Concomitant]
     Active Substance: ASPIRIN
     Dosage: 75 MG, 1X/DAY
  2. SIMVASTATIN. [Concomitant]
     Active Substance: SIMVASTATIN
     Dosage: 40 MG, 1X/DAY AT NIGHT
  3. CHAMPIX [Suspect]
     Active Substance: VARENICLINE TARTRATE
     Dosage: UNK
     Dates: start: 20140424

REACTIONS (4)
  - Loss of consciousness [Recovered/Resolved]
  - Hypocalcaemic seizure [Recovered/Resolved]
  - Vitamin D deficiency [Not Recovered/Not Resolved]
  - Blood calcium decreased [Not Recovered/Not Resolved]

NARRATIVE: CASE EVENT DATE: 2014
